FAERS Safety Report 18003482 (Version 1)
Quarter: 2020Q3

REPORT INFORMATION
  Report Type: Spontaneous
  Country: JP (occurrence: JP)
  Receive Date: 20200710
  Receipt Date: 20200710
  Transmission Date: 20201103
  Serious: Yes (Other)
  Sender: FDA-Public Use
  Company Number: JP-AMGEN-JPNSP2020108475

PATIENT
  Age: 57 Year
  Sex: Female

DRUGS (1)
  1. RANMARK [Suspect]
     Active Substance: DENOSUMAB
     Indication: HYPERCALCAEMIA
     Dosage: 120 MG, ONCE EVERY 3 MO
     Route: 065

REACTIONS (3)
  - Blood calcium decreased [Unknown]
  - Tracheal stenosis [Unknown]
  - Off label use [Unknown]
